FAERS Safety Report 13845725 (Version 1)
Quarter: 2017Q3

REPORT INFORMATION
  Report Type: Spontaneous
  Country: US (occurrence: US)
  Receive Date: 20170808
  Receipt Date: 20170808
  Transmission Date: 20171127
  Serious: No
  Sender: FDA-Public Use
  Company Number: US-ROCHE-623410

PATIENT
  Age: 63 Year
  Sex: Female

DRUGS (1)
  1. BONIVA [Suspect]
     Active Substance: IBANDRONATE SODIUM
     Indication: OSTEOPENIA
     Route: 065
     Dates: start: 200709, end: 2009

REACTIONS (4)
  - Trismus [Unknown]
  - Pain in jaw [Unknown]
  - Oropharyngeal pain [Unknown]
  - Trismus [Recovered/Resolved]

NARRATIVE: CASE EVENT DATE: 2008
